FAERS Safety Report 23466005 (Version 3)
Quarter: 2024Q1

REPORT INFORMATION
  Report Type: Spontaneous
  Country: PT (occurrence: PT)
  Receive Date: 20240201
  Receipt Date: 20240306
  Transmission Date: 20240409
  Serious: Yes (Hospitalization)
  Sender: FDA-Public Use
  Company Number: PT-ROCHE-2468178

PATIENT
  Age: 43 Year
  Sex: Female

DRUGS (17)
  1. TRASTUZUMAB [Suspect]
     Active Substance: TRASTUZUMAB
     Indication: HER2 positive breast cancer
     Dosage: 600 MG, EVERY 3 WEEKS
     Route: 058
     Dates: start: 20180918, end: 20181130
  2. ADO-TRASTUZUMAB EMTANSINE [Suspect]
     Active Substance: ADO-TRASTUZUMAB EMTANSINE
     Indication: HER2 positive breast cancer
     Dosage: MOST RECENT DOSE OF CAPACITABINE: 04/FEB/2019
     Route: 042
     Dates: start: 20181218
  3. CAPECITABINE [Suspect]
     Active Substance: CAPECITABINE
     Indication: HER2 positive breast cancer
     Dosage: 1170 MG
     Route: 048
     Dates: start: 20190226
  4. CAPECITABINE [Suspect]
     Active Substance: CAPECITABINE
     Dosage: 50 MG, 4X/DAY
     Route: 048
     Dates: start: 20190226
  5. PERTUZUMAB [Suspect]
     Active Substance: PERTUZUMAB
     Indication: HER2 positive breast cancer
     Dosage: MOST RECENT DOSE OF PERTUZUMAB: 30/NOV/2018
     Route: 042
     Dates: start: 20180918
  6. LAPATINIB [Suspect]
     Active Substance: LAPATINIB
     Indication: HER2 positive breast cancer
     Dosage: 1250 MG, 1X/DAY
     Route: 048
     Dates: start: 20190316
  7. VINORELBINE [Suspect]
     Active Substance: VINORELBINE TARTRATE
     Indication: HER2 positive breast cancer
     Dosage: MOST RECENT DOSE  30/NOV/2018
     Route: 042
     Dates: start: 20180918
  8. MORPHINE SULFATE [Concomitant]
     Active Substance: MORPHINE SULFATE
     Dates: start: 20190828
  9. EDOXABAN [Concomitant]
     Active Substance: EDOXABAN
     Dates: start: 20190828
  10. METAMIZOLE [Concomitant]
     Active Substance: METAMIZOLE
     Dosage: UNK
     Dates: start: 20190122
  11. AMLODIPINE [Concomitant]
     Active Substance: AMLODIPINE BESYLATE
     Dosage: UNK
     Dates: start: 20190828
  12. TAPENTADOL [Concomitant]
     Active Substance: TAPENTADOL
     Dosage: UNK
  13. FENTANYL [Concomitant]
     Active Substance: FENTANYL\FENTANYL CITRATE
     Dosage: UNK
  14. TRAMADOL [Concomitant]
     Active Substance: TRAMADOL\TRAMADOL HYDROCHLORIDE
     Dosage: UNK
     Dates: start: 20190122
  15. FLUCLOXACILLIN [Concomitant]
     Active Substance: FLUCLOXACILLIN
     Dosage: UNK
     Dates: start: 20190122
  16. PERINDOPRIL [Concomitant]
     Active Substance: PERINDOPRIL
     Dosage: UNK
     Dates: start: 20190828
  17. METOCLOPRAMIDE [Concomitant]
     Active Substance: METOCLOPRAMIDE
     Dosage: UNK
     Dates: start: 20190719

REACTIONS (2)
  - Subclavian vein thrombosis [Recovered/Resolved]
  - Off label use [Unknown]

NARRATIVE: CASE EVENT DATE: 20190826
